FAERS Safety Report 21689038 (Version 1)
Quarter: 2022Q4

REPORT INFORMATION
  Report Type: Spontaneous
  Country: GB (occurrence: GB)
  Receive Date: 20221206
  Receipt Date: 20221206
  Transmission Date: 20230113
  Serious: Yes (Other)
  Sender: FDA-Public Use
  Company Number: None

PATIENT
  Age: 62 Year
  Sex: Female
  Weight: 57 kg

DRUGS (17)
  1. MEROPENEM [Suspect]
     Active Substance: MEROPENEM
     Dosage: 1 G, 1X/DAY
  2. VABORBACTAM [Suspect]
     Active Substance: VABORBACTAM
     Dosage: 1 G, 1X/DAY
  3. ACYCLOVIR [Concomitant]
     Active Substance: ACYCLOVIR
     Dosage: 1 DF, 2X/DAY
     Dates: start: 20220824
  4. AZITHROMYCIN [Concomitant]
     Active Substance: AZITHROMYCIN
     Dosage: 1 DF ON A MONDAY, WEDNESDAY, AND FRIDAY
     Dates: start: 20220824
  5. CALCIUM CARBONATE\CHOLECALCIFEROL [Concomitant]
     Active Substance: CALCIUM CARBONATE\CHOLECALCIFEROL
     Dosage: 1 DF, 1X/DAY (PER HOSPITAL)
     Dates: start: 20220824
  6. AMOXICILLIN\CLAVULANATE POTASSIUM [Concomitant]
     Active Substance: AMOXICILLIN\CLAVULANATE POTASSIUM
     Dosage: 1 DF, 3X/DAY
     Dates: start: 20221101, end: 20221108
  7. DAPAGLIFLOZIN [Concomitant]
     Active Substance: DAPAGLIFLOZIN
     Dosage: 1 DF, 1X/DAY
     Dates: start: 20220905
  8. EPLERENONE [Concomitant]
     Active Substance: EPLERENONE
     Dosage: 1 DF, 1X/DAY
     Dates: start: 20220824
  9. FLUCLOXACILLIN [Concomitant]
     Active Substance: FLUCLOXACILLIN
     Dosage: 1 DF, 4X/DAY
     Dates: start: 20221101, end: 20221108
  10. BECLOMETHASONE\FORMOTEROL [Concomitant]
     Active Substance: BECLOMETHASONE\FORMOTEROL
     Dosage: 1 DF, 2X/DAY (ONE PUFF, RINSE YOUR MOUTH?)
     Route: 055
     Dates: start: 20220824
  11. FUROSEMIDE [Concomitant]
     Active Substance: FUROSEMIDE
     Dosage: 1 DF, ALTERNATE DAY
     Dates: start: 20220824
  12. IVABRADINE [Concomitant]
     Active Substance: IVABRADINE
     Dosage: 1 DF, 2X/DAY (AS ADVISED BY THE H?)
     Dates: start: 20220824
  13. MONTELUKAST [Concomitant]
     Active Substance: MONTELUKAST SODIUM
     Dosage: 1 DF, 1X/DAY (EVERY EVENING)
     Dates: start: 20220824
  14. PIZOTYLINE [Concomitant]
     Active Substance: PIZOTYLINE
     Dosage: 3 DF, 1X/DAY (WHILST THE SINGLE 1?)
     Dates: start: 20220824
  15. PRAVASTATIN [Concomitant]
     Active Substance: PRAVASTATIN
     Dosage: 1 DF, 1X/DAY (AT NIGHT)
     Dates: start: 20220824
  16. SACUBITRIL [Concomitant]
     Active Substance: SACUBITRIL
     Dosage: 1 DF, 2X/DAY
     Dates: start: 20220824
  17. ALBUTEROL [Concomitant]
     Active Substance: ALBUTEROL
     Dosage: 2 DF, AS NEEDED (INHALE 2 DOSES)
     Route: 055
     Dates: start: 20220824

REACTIONS (2)
  - Swelling face [Unknown]
  - Rash [Unknown]
